FAERS Safety Report 23538103 (Version 1)
Quarter: 2024Q1

REPORT INFORMATION
  Report Type: Spontaneous
  Country: US (occurrence: None)
  Receive Date: 20240219
  Receipt Date: 20240219
  Transmission Date: 20240409
  Serious: No
  Sender: FDA-Public Use
  Company Number: 2024A030016

PATIENT
  Sex: Female

DRUGS (1)
  1. FARXIGA [Suspect]
     Active Substance: DAPAGLIFLOZIN PROPANEDIOL
     Route: 048
     Dates: start: 20240110, end: 20240122

REACTIONS (9)
  - Dizziness [Unknown]
  - Brain fog [Unknown]
  - Asthenia [Unknown]
  - Dyspnoea [Unknown]
  - Perineal rash [Unknown]
  - Dry mouth [Unknown]
  - Drug ineffective [Unknown]
  - Inappropriate schedule of product administration [Unknown]
  - Product use issue [Unknown]
